FAERS Safety Report 10059487 (Version 1)
Quarter: 2014Q2

REPORT INFORMATION
  Report Type: Spontaneous
  Country: US (occurrence: US)
  Receive Date: 20140404
  Receipt Date: 20140404
  Transmission Date: 20141212
  Serious: Yes (Hospitalization, Other)
  Sender: FDA-Public Use
  Company Number: US-PFIZER INC-2014093521

PATIENT
  Age: 64 Year
  Sex: Female
  Weight: 79.37 kg

DRUGS (5)
  1. PROTONIX [Suspect]
     Indication: GASTROOESOPHAGEAL REFLUX DISEASE
     Dosage: 40 MG, 1X/DAY
     Route: 048
     Dates: start: 1995
  2. PROTONIX [Suspect]
     Dosage: UNK
     Route: 048
  3. SYNTHROID [Concomitant]
     Dosage: UNK
  4. CELEXA [Concomitant]
     Dosage: UNK
  5. WELLBUTRIN [Concomitant]
     Dosage: UNK

REACTIONS (3)
  - Hyperthyroidism [Unknown]
  - Aphagia [Unknown]
  - Depression [Unknown]
